FAERS Safety Report 19152366 (Version 2)
Quarter: 2021Q2

REPORT INFORMATION
  Report Type: Report from Study
  Country: US (occurrence: US)
  Receive Date: 20210419
  Receipt Date: 20210504
  Transmission Date: 20210717
  Serious: Yes (Death, Hospitalization, Other)
  Sender: FDA-Public Use
  Company Number: US-BAYER-2021-124354

PATIENT
  Age: 82 Year
  Sex: Female

DRUGS (5)
  1. ADEMPAS [Suspect]
     Active Substance: RIOCIGUAT
     Indication: PULMONARY ARTERIAL HYPERTENSION
     Dosage: UNK
     Route: 048
  2. ADEMPAS [Suspect]
     Active Substance: RIOCIGUAT
     Indication: PULMONARY ARTERIAL HYPERTENSION
     Dosage: 1 MG, TID
     Route: 048
     Dates: start: 20170222
  3. AMBRISENTAN [Suspect]
     Active Substance: AMBRISENTAN
  4. REMODULIN [Suspect]
     Active Substance: TREPROSTINIL
     Dosage: 0.011 ?G/KG
     Dates: start: 20210218
  5. REMODULIN [Suspect]
     Active Substance: TREPROSTINIL
     Dosage: 0.015 ?G/KG

REACTIONS (15)
  - Toxic encephalopathy [None]
  - Normocytic anaemia [None]
  - Right ventricular failure [None]
  - Oedema peripheral [None]
  - Chronic respiratory failure [None]
  - Death [Fatal]
  - Cellulitis [None]
  - Acute kidney injury [None]
  - Pulmonary arterial hypertension [None]
  - Hyponatraemia [None]
  - Cardiogenic shock [None]
  - Hyperkalaemia [None]
  - Chronic obstructive pulmonary disease [None]
  - Hypotension [None]
  - Thrombocytopenia [None]

NARRATIVE: CASE EVENT DATE: 202102
